FAERS Safety Report 22092432 (Version 63)
Quarter: 2025Q4

REPORT INFORMATION
  Report Type: Report from Study
  Country: CA (occurrence: CA)
  Receive Date: 20230314
  Receipt Date: 20251222
  Transmission Date: 20260118
  Serious: Yes (Hospitalization, Other)
  Sender: TAKEDA
  Company Number: CA-TAKEDA-2023TUS003887

PATIENT
  Age: 11 Year
  Sex: Female

DRUGS (51)
  1. IDURSULFASE [Suspect]
     Active Substance: IDURSULFASE
     Indication: Mucopolysaccharidosis II
     Dosage: 3 DOSAGE FORM, 1/WEEK
     Dates: start: 20161215
  2. IDURSULFASE [Suspect]
     Active Substance: IDURSULFASE
     Dosage: 3 DOSAGE FORM, 1/WEEK
  3. IDURSULFASE [Suspect]
     Active Substance: IDURSULFASE
     Dosage: UNK UNK, 1/WEEK
  4. IDURSULFASE [Suspect]
     Active Substance: IDURSULFASE
     Dosage: 15.6 MILLIGRAM, 1/WEEK
  5. IDURSULFASE [Suspect]
     Active Substance: IDURSULFASE
     Dosage: 16 MILLIGRAM, 1/WEEK
  6. IDURSULFASE [Suspect]
     Active Substance: IDURSULFASE
     Dosage: 15.6 MILLIGRAM, 1/WEEK
  7. IDURSULFASE [Suspect]
     Active Substance: IDURSULFASE
     Dosage: 16 MILLIGRAM, 1/WEEK
  8. IDURSULFASE [Suspect]
     Active Substance: IDURSULFASE
     Dosage: 16 MILLIGRAM, 1/WEEK
  9. IDURSULFASE [Suspect]
     Active Substance: IDURSULFASE
     Dosage: UNK UNK, 1/WEEK
  10. IDURSULFASE [Suspect]
     Active Substance: IDURSULFASE
     Dosage: 16 GRAM, 1/WEEK
  11. IDURSULFASE [Suspect]
     Active Substance: IDURSULFASE
     Dosage: 16 MILLIGRAM, 1/WEEK
  12. IDURSULFASE [Suspect]
     Active Substance: IDURSULFASE
     Dosage: 16 MILLIGRAM, 1/WEEK
  13. IDURSULFASE [Suspect]
     Active Substance: IDURSULFASE
     Dosage: UNK UNK, 1/WEEK
  14. IDURSULFASE [Suspect]
     Active Substance: IDURSULFASE
     Dosage: 16 MILLIGRAM, 1/WEEK
  15. IDURSULFASE [Suspect]
     Active Substance: IDURSULFASE
     Dosage: UNK UNK, 1/WEEK
  16. IDURSULFASE [Suspect]
     Active Substance: IDURSULFASE
     Dosage: 16 MILLIGRAM, 1/WEEK
  17. IDURSULFASE [Suspect]
     Active Substance: IDURSULFASE
     Dosage: 16 MILLIGRAM, 1/WEEK
  18. IDURSULFASE [Suspect]
     Active Substance: IDURSULFASE
     Dosage: 16 GRAM, 1/WEEK
  19. IDURSULFASE [Suspect]
     Active Substance: IDURSULFASE
     Dosage: 16 MILLIGRAM, 1/WEEK
  20. IDURSULFASE [Suspect]
     Active Substance: IDURSULFASE
     Dosage: 16 MILLIGRAM, 1/WEEK
  21. IDURSULFASE [Suspect]
     Active Substance: IDURSULFASE
     Dosage: 16 MILLIGRAM, 1/WEEK
  22. IDURSULFASE [Suspect]
     Active Substance: IDURSULFASE
     Dosage: 16 MILLIGRAM, 1/WEEK
  23. IDURSULFASE [Suspect]
     Active Substance: IDURSULFASE
     Dosage: 17.5 MILLIGRAM, 1/WEEK
  24. IDURSULFASE [Suspect]
     Active Substance: IDURSULFASE
     Dosage: UNK UNK, 1/WEEK
  25. IDURSULFASE [Suspect]
     Active Substance: IDURSULFASE
     Dosage: 17.5 MILLIGRAM, 1/WEEK
  26. IDURSULFASE [Suspect]
     Active Substance: IDURSULFASE
     Dosage: 17.5 MILLIGRAM, 1/WEEK
  27. IDURSULFASE [Suspect]
     Active Substance: IDURSULFASE
     Dosage: 17.5 MILLIGRAM, 1/WEEK
  28. IDURSULFASE [Suspect]
     Active Substance: IDURSULFASE
     Dosage: 17.5 MILLIGRAM, 1/WEEK
  29. IDURSULFASE [Suspect]
     Active Substance: IDURSULFASE
     Dosage: 17.5 MILLIGRAM, 1/WEEK
  30. IDURSULFASE [Suspect]
     Active Substance: IDURSULFASE
     Dosage: 17.5 MILLIGRAM, 1/WEEK
  31. IDURSULFASE [Suspect]
     Active Substance: IDURSULFASE
     Dosage: 17.5 MILLIGRAM, 1/WEEK
  32. IDURSULFASE [Suspect]
     Active Substance: IDURSULFASE
     Dosage: 17.5 MILLIGRAM, 1/WEEK
  33. IDURSULFASE [Suspect]
     Active Substance: IDURSULFASE
     Dosage: 21 MILLIGRAM, 1/WEEK
  34. IDURSULFASE [Suspect]
     Active Substance: IDURSULFASE
     Dosage: 21 MILLIGRAM, 1/WEEK
  35. IDURSULFASE [Suspect]
     Active Substance: IDURSULFASE
     Dosage: 21 MILLIGRAM, 1/WEEK
  36. IDURSULFASE [Suspect]
     Active Substance: IDURSULFASE
     Dosage: 21 MILLIGRAM, 1/WEEK
  37. IDURSULFASE [Suspect]
     Active Substance: IDURSULFASE
     Dosage: 21 MILLIGRAM, 1/WEEK
  38. IDURSULFASE [Suspect]
     Active Substance: IDURSULFASE
     Dosage: 21 MILLIGRAM, 1/WEEK
  39. METHYLPHENIDATE HYDROCHLORIDE [Concomitant]
     Active Substance: METHYLPHENIDATE HYDROCHLORIDE
     Dosage: UNK
  40. METHYLPHENIDATE HYDROCHLORIDE [Concomitant]
     Active Substance: METHYLPHENIDATE HYDROCHLORIDE
     Dosage: 55 MILLIGRAM
  41. ABILIFY [Concomitant]
     Active Substance: ARIPIPRAZOLE
     Dosage: UNK
  42. ABILIFY [Concomitant]
     Active Substance: ARIPIPRAZOLE
     Dosage: UNK
  43. SEROQUEL [Concomitant]
     Active Substance: QUETIAPINE FUMARATE
     Dosage: UNK
  44. SEROQUEL [Concomitant]
     Active Substance: QUETIAPINE FUMARATE
     Dosage: 125 MILLIGRAM
  45. CONCERTA [Concomitant]
     Active Substance: METHYLPHENIDATE HYDROCHLORIDE
     Dosage: UNK
  46. SERTRALINE [Concomitant]
     Active Substance: SERTRALINE HYDROCHLORIDE
     Dosage: UNK
  47. ARIPIPRAZOLE [Concomitant]
     Active Substance: ARIPIPRAZOLE
     Dosage: UNK
  48. RITALIN [Concomitant]
     Active Substance: METHYLPHENIDATE HYDROCHLORIDE
     Dosage: UNK
  49. ALVESCO [Concomitant]
     Active Substance: CICLESONIDE
     Dosage: 2000 MICROGRAM
  50. VENTOLIN [Concomitant]
     Active Substance: ALBUTEROL SULFATE
     Dosage: UNK
  51. FLOVENT [Concomitant]
     Active Substance: FLUTICASONE PROPIONATE
     Dosage: UNK UNK, BID

REACTIONS (63)
  - Blood pressure decreased [Recovered/Resolved]
  - Dental fistula [Recovering/Resolving]
  - Anxiety [Recovered/Resolved]
  - Gait disturbance [Not Recovered/Not Resolved]
  - Malaise [Unknown]
  - Mass [Not Recovered/Not Resolved]
  - Lymphoma [Recovering/Resolving]
  - Neutropenia [Not Recovered/Not Resolved]
  - Hodgkin^s disease [Unknown]
  - COVID-19 [Recovered/Resolved]
  - Headache [Recovered/Resolved]
  - Tooth abscess [Recovering/Resolving]
  - Product dose omission issue [Unknown]
  - Inappropriate schedule of product administration [Unknown]
  - Feeling hot [Recovered/Resolved]
  - Heart rate increased [Unknown]
  - Crying [Recovered/Resolved]
  - Migraine [Not Recovered/Not Resolved]
  - Umbilical hernia [Recovering/Resolving]
  - Panic attack [Recovered/Resolved]
  - Multiple allergies [Not Recovered/Not Resolved]
  - Exostosis [Unknown]
  - Fall [Recovering/Resolving]
  - Nasopharyngitis [Not Recovered/Not Resolved]
  - Decreased appetite [Not Recovered/Not Resolved]
  - Illness [Not Recovered/Not Resolved]
  - Pain in extremity [Recovering/Resolving]
  - Nasal congestion [Recovering/Resolving]
  - Walking aid user [Recovering/Resolving]
  - Skin lesion [Unknown]
  - Aggression [Recovering/Resolving]
  - Joint injury [Recovered/Resolved]
  - Gastroenteritis viral [Not Recovered/Not Resolved]
  - Insomnia [Not Recovered/Not Resolved]
  - Acne [Recovering/Resolving]
  - Blood pressure fluctuation [Unknown]
  - Blood pressure increased [Unknown]
  - Body temperature abnormal [Unknown]
  - Heart rate abnormal [Unknown]
  - Blood pressure abnormal [Unknown]
  - Weight increased [Unknown]
  - Influenza [Not Recovered/Not Resolved]
  - Device occlusion [Unknown]
  - Blood test abnormal [Unknown]
  - Device issue [Recovered/Resolved]
  - Weight fluctuation [Unknown]
  - Catheter site pain [Recovered/Resolved]
  - Fatigue [Not Recovered/Not Resolved]
  - Ear infection [Recovering/Resolving]
  - Cough [Recovering/Resolving]
  - Chest pain [Not Recovered/Not Resolved]
  - Dyspnoea [Not Recovered/Not Resolved]
  - Pruritus [Unknown]
  - Ankle fracture [Recovering/Resolving]
  - Incorrect product administration duration [Unknown]
  - Oropharyngeal pain [Recovered/Resolved]
  - Vomiting [Recovered/Resolved]
  - Nausea [Recovered/Resolved]
  - Pyrexia [Recovered/Resolved]
  - Ligament sprain [Recovering/Resolving]
  - Electric shock sensation [Unknown]
  - Rhinorrhoea [Recovering/Resolving]
  - Heart rate decreased [Unknown]

NARRATIVE: CASE EVENT DATE: 20230117
